FAERS Safety Report 4298167-1 (Version None)
Quarter: 2004Q1

REPORT INFORMATION
  Report Type: 
  Country: None (occurrence: None)
  Receive Date: 20040126
  Receipt Date: 20030922
  Transmission Date: 20041129
  Serious: No
  Sender: FDA-Public Use
  Company Number: USA030947914

PATIENT
  Age: 5 Year
  Sex: Male
  Weight: 20 kg

DRUGS (2)
  1. STRATTERA (ATOMOXETINE HYDROCHLORIDE) [Suspect]
     Indication: ATTENTION DEFICIT/HYPERACTIVITY DISORDER
     Dosage: 36 MG/ IN THE EVENING
  2. CONCERTA [Concomitant]

REACTIONS (3)
  - CONSTIPATION [None]
  - PRESCRIBED OVERDOSE [None]
  - SLEEP DISORDER [None]
